FAERS Safety Report 14596307 (Version 3)
Quarter: 2019Q2

REPORT INFORMATION
  Report Type: Spontaneous
  Country: US (occurrence: US)
  Receive Date: 20180303
  Receipt Date: 20190419
  Transmission Date: 20190711
  Serious: No
  Sender: FDA-Public Use
  Company Number: US-JNJFOC-20180225481

PATIENT
  Age: 86 Year
  Sex: Female

DRUGS (3)
  1. PEPCID AC MAXIMUM STRENGTH [Suspect]
     Active Substance: FAMOTIDINE
     Route: 048
  2. PEPCID AC MAXIMUM STRENGTH [Suspect]
     Active Substance: FAMOTIDINE
     Indication: SENSATION OF FOREIGN BODY
     Route: 048
     Dates: end: 20180215
  3. TUMS [Concomitant]
     Active Substance: CALCIUM CARBONATE
     Indication: SENSATION OF FOREIGN BODY
     Route: 065

REACTIONS (5)
  - Foaming at mouth [Not Recovered/Not Resolved]
  - Off label use [Not Recovered/Not Resolved]
  - Contraindicated product administered [Not Recovered/Not Resolved]
  - Product use in unapproved indication [Not Recovered/Not Resolved]
  - Therapeutic response unexpected [Unknown]
